FAERS Safety Report 25831623 (Version 1)
Quarter: 2025Q3

REPORT INFORMATION
  Report Type: Spontaneous
  Country: US (occurrence: US)
  Receive Date: 20250922
  Receipt Date: 20250922
  Transmission Date: 20251020
  Serious: Yes (Other)
  Sender: ABBVIE
  Company Number: US-ABBVIE-6469151

PATIENT
  Age: 44 Year
  Sex: Female

DRUGS (1)
  1. LILETTA [Suspect]
     Active Substance: LEVONORGESTREL
     Indication: Product used for unknown indication
     Route: 015
     Dates: start: 20250722

REACTIONS (3)
  - Uterine haemorrhage [Not Recovered/Not Resolved]
  - Uterine spasm [Unknown]
  - Device expulsion [Unknown]

NARRATIVE: CASE EVENT DATE: 20250915
